FAERS Safety Report 6573107-0 (Version None)
Quarter: 2010Q1

REPORT INFORMATION
  Report Type: 
  Country: None (occurrence: None)
  Receive Date: 20100208
  Receipt Date: 20100203
  Transmission Date: 20100710
  Serious: Yes (Death)
  Sender: FDA-Public Use
  Company Number: ZA-JNJFOC-20100202567

PATIENT

DRUGS (2)
  1. DURAGESIC-100 [Suspect]
     Indication: DRUG USE FOR UNKNOWN INDICATION
     Route: 062
  2. MEPERIDINE HCL [Suspect]
     Indication: BREAKTHROUGH PAIN
     Route: 065

REACTIONS (2)
  - BREAKTHROUGH PAIN [None]
  - DEATH [None]
